FAERS Safety Report 18582753 (Version 1)
Quarter: 2020Q4

REPORT INFORMATION
  Report Type: Spontaneous
  Country: US (occurrence: US)
  Receive Date: 20201205
  Receipt Date: 20201205
  Transmission Date: 20210114
  Serious: Yes (Other)
  Sender: FDA-Public Use
  Company Number: US-009507513-2011USA015084

PATIENT
  Age: 59 Year
  Sex: Female

DRUGS (14)
  1. CLONIDINE. [Suspect]
     Active Substance: CLONIDINE
     Dosage: DOSE= FREQ= ROUTE= EXPDT=
  2. CARDIZEM [Suspect]
     Active Substance: DILTIAZEM HYDROCHLORIDE
     Dosage: DOSE= FREQ= ROUTE= EXPDT=
  3. BYSTOLIC [Suspect]
     Active Substance: NEBIVOLOL HYDROCHLORIDE
     Dosage: DOSE= FREQ= ROUTE= EXPDT=
  4. AVAPRO [Suspect]
     Active Substance: IRBESARTAN
  5. TEKTURNA [Suspect]
     Active Substance: ALISKIREN HEMIFUMARATE
  6. ALDACTONE [Suspect]
     Active Substance: SPIRONOLACTONE
  7. ATENOLOL. [Suspect]
     Active Substance: ATENOLOL
     Dosage: DOSE= FREQ= ROUTE= EXPDT=
  8. COREG [Suspect]
     Active Substance: CARVEDILOL
     Dosage: DOSE= FREQ= ROUTE= EXPDT=
  9. HYDROCHLOROTHIAZIDE. [Suspect]
     Active Substance: HYDROCHLOROTHIAZIDE
     Dosage: DOSE= FREQ= ROUTE= EXPDT=
  10. VALTURNA [Suspect]
     Active Substance: ALISKIREN HEMIFUMARATE\VALSARTAN
  11. PRINIVIL [Suspect]
     Active Substance: LISINOPRIL
     Dosage: DOSE= FREQ= ROUTE= EXPDT=
  12. NORVASC [Suspect]
     Active Substance: AMLODIPINE BESYLATE
     Dosage: DOSE= FREQ= ROUTE= EXPDT=
  13. DIOVAN HCT [Suspect]
     Active Substance: HYDROCHLOROTHIAZIDE\VALSARTAN
  14. DIOVAN [Suspect]
     Active Substance: VALSARTAN
     Dosage: DOSE= FREQ= ROUTE= EXPDT=

REACTIONS (9)
  - Drug hypersensitivity [Unknown]
  - Throat tightness [Unknown]
  - Rash [Unknown]
  - Wheezing [Unknown]
  - Urticaria [Unknown]
  - Asthma [Unknown]
  - Palpitations [Unknown]
  - Blood pressure increased [Unknown]
  - Chest discomfort [Unknown]
